FAERS Safety Report 4353341-0 (Version None)
Quarter: 2004Q2

REPORT INFORMATION
  Report Type: 
  Country: None (occurrence: None)
  Receive Date: 20040429
  Receipt Date: 20040419
  Transmission Date: 20050107
  Serious: Yes (Death)
  Sender: FDA-Public Use
  Company Number: 04H-163-0258063-00

PATIENT

DRUGS (1)
  1. POTASSIUM CHLORIDE INJECTION (POTASSIUM CHLORIDE IN WATER FOR INJECTIO [Suspect]
     Dosage: 10 MILLIEQUIVALENTS, ONCE, INTRAVENOUS
     Route: 042

REACTIONS (2)
  - CARDIAC ARREST [None]
  - MEDICATION ERROR [None]
